FAERS Safety Report 5573631-3 (Version None)
Quarter: 2007Q4

REPORT INFORMATION
  Report Type: 
  Country: None (occurrence: None)
  Receive Date: 20071226
  Receipt Date: 20071211
  Transmission Date: 20080405
  Serious: Yes (Death, Hospitalization)
  Sender: FDA-Public Use
  Company Number: DE-AMGEN-US257371

PATIENT
  Sex: Female

DRUGS (9)
  1. ENBREL [Suspect]
     Indication: RHEUMATOID ARTHRITIS
     Route: 058
     Dates: start: 20040801
  2. CYCLOSPORINE [Suspect]
     Indication: RHEUMATOID ARTHRITIS
     Route: 065
     Dates: start: 20060201
  3. PREDNISOLONE [Suspect]
     Route: 065
     Dates: start: 20020901
  4. METHOTREXATE [Suspect]
     Indication: RHEUMATOID ARTHRITIS
     Route: 065
     Dates: start: 20020901
  5. METOCLOPRAMIDE [Concomitant]
     Dosage: UNKNOWN
     Dates: start: 20060401
  6. CALCIMAGON [Concomitant]
     Dosage: 2 TABLETS PER DAY
     Dates: start: 20050101
  7. OXYCODONE HCL [Concomitant]
     Dosage: UNKNOWN
     Dates: start: 20030101
  8. AMITRIPTLINE HCL [Concomitant]
     Dosage: 75MG (FREQUENCY UNKNOWN)
     Dates: start: 20021201
  9. FOLIC ACID [Concomitant]
     Dates: start: 20030401

REACTIONS (6)
  - DIARRHOEA [None]
  - DIZZINESS [None]
  - MULTI-ORGAN FAILURE [None]
  - NAUSEA [None]
  - SYSTEMIC INFLAMMATORY RESPONSE SYNDROME [None]
  - VOMITING [None]
